FAERS Safety Report 23870884 (Version 2)
Quarter: 2024Q2

REPORT INFORMATION
  Report Type: Report from Study
  Country: US (occurrence: US)
  Receive Date: 20240518
  Receipt Date: 20240529
  Transmission Date: 20240716
  Serious: Yes (Other)
  Sender: FDA-Public Use
  Company Number: US-TAKEDA-2023TUS053888

PATIENT
  Age: 77 Year
  Sex: Female
  Weight: 50 kg

DRUGS (7)
  1. BORTEZOMIB [Suspect]
     Active Substance: BORTEZOMIB
     Indication: Plasma cell myeloma
     Dosage: UNK UNK, 1/WEEK
     Route: 065
  2. NINLARO [Interacting]
     Active Substance: IXAZOMIB CITRATE
     Indication: Plasma cell myeloma
     Dosage: 4 MILLIGRAM
     Route: 048
     Dates: start: 20230530
  3. NINLARO [Interacting]
     Active Substance: IXAZOMIB CITRATE
     Dosage: 2.3 MILLIGRAM, 1/WEEK
     Route: 048
     Dates: start: 20230614
  4. NINLARO [Interacting]
     Active Substance: IXAZOMIB CITRATE
     Dosage: UNK
     Route: 048
  5. NINLARO [Interacting]
     Active Substance: IXAZOMIB CITRATE
     Dosage: 2.3 MILLIGRAM
     Route: 048
  6. ALLICIN [Interacting]
     Active Substance: ALLICIN
     Indication: Diarrhoea
     Dosage: UNK
     Route: 065
  7. ALLICIN [Interacting]
     Active Substance: ALLICIN
     Indication: Purpura

REACTIONS (30)
  - Metastases to bone [Unknown]
  - Brain neoplasm [Unknown]
  - Spinal fracture [Unknown]
  - Plasma cell myeloma [Unknown]
  - Urinary bladder haemorrhage [Unknown]
  - Purpura [Unknown]
  - Drug interaction [Unknown]
  - Skin wrinkling [Unknown]
  - Red blood cell count decreased [Not Recovered/Not Resolved]
  - Rash macular [Not Recovered/Not Resolved]
  - Ear pain [Unknown]
  - Memory impairment [Unknown]
  - Weight increased [Unknown]
  - Tooth infection [Unknown]
  - Central nervous system lesion [Unknown]
  - Glomerular filtration rate abnormal [Unknown]
  - Hunger [Unknown]
  - Blood iron decreased [Not Recovered/Not Resolved]
  - Chromaturia [Not Recovered/Not Resolved]
  - Breast mass [Not Recovered/Not Resolved]
  - Skin burning sensation [Unknown]
  - Drug ineffective [Unknown]
  - Cat scratch disease [Unknown]
  - Pain [Unknown]
  - Back pain [Unknown]
  - Constipation [Unknown]
  - Diarrhoea [Recovered/Resolved]
  - Infection [Unknown]
  - Weight decreased [Unknown]
  - Product dose omission issue [Not Recovered/Not Resolved]

NARRATIVE: CASE EVENT DATE: 20230530
